FAERS Safety Report 4349811-1 (Version None)
Quarter: 2004Q2

REPORT INFORMATION
  Report Type: 
  Country: None (occurrence: None)
  Receive Date: 20040426
  Receipt Date: 20040325
  Transmission Date: 20050107
  Serious: Yes (Hospitalization, Other)
  Sender: FDA-Public Use
  Company Number: 2004017815

PATIENT
  Sex: Female

DRUGS (2)
  1. LIPITOR [Suspect]
     Indication: BLOOD CHOLESTEROL INCREASED
  2. CLOPIDOGREL BISULFATE [Concomitant]

REACTIONS (11)
  - ANGINA PECTORIS [None]
  - ARRHYTHMIA [None]
  - ARTERIAL OCCLUSIVE DISEASE [None]
  - EXTRASYSTOLES [None]
  - FATIGUE [None]
  - GLAUCOMA [None]
  - HEART RATE DECREASED [None]
  - HYPERHIDROSIS [None]
  - IRRITABILITY [None]
  - MYOCARDIAL INFARCTION [None]
  - PULSE ABSENT [None]
